FAERS Safety Report 8047272-2 (Version None)
Quarter: 2012Q1

REPORT INFORMATION
  Report Type: 
  Country: None (occurrence: None)
  Receive Date: 20120116
  Receipt Date: 20120110
  Transmission Date: 20120608
  Serious: No
  Sender: FDA-Public Use
  Company Number: US-B.I. PHARMACEUTICALS,INC./RIDGEFIELD-2012-BP-00551BP

PATIENT
  Sex: Female

DRUGS (7)
  1. CALCIUM AND VITAMIN D [Concomitant]
     Indication: PROPHYLAXIS
     Dosage: 1600 U
     Route: 048
  2. SPIRIVA [Suspect]
     Indication: DIAPHRAGMATIC PARALYSIS
     Dosage: 18 MCG
     Route: 055
     Dates: start: 20070101
  3. SIMVASTATIN [Concomitant]
     Indication: HYPERLIPIDAEMIA
     Dosage: 40 MG
     Route: 048
     Dates: start: 20040101
  4. ISOSORBIDE DINITRATE [Concomitant]
     Indication: ANGINA PECTORIS
     Dosage: 60 MG
     Route: 048
     Dates: start: 20060101
  5. FISH OIL [Concomitant]
     Indication: PROPHYLAXIS
     Route: 048
  6. SPIRONOLACTONE [Concomitant]
     Indication: HYPERTENSION
     Dosage: 50 MG
     Route: 048
     Dates: start: 20050101
  7. AMLODIPINE [Concomitant]
     Indication: ANGINA PECTORIS
     Dosage: 5 MG
     Route: 048
     Dates: start: 20060101

REACTIONS (2)
  - CATARACT [None]
  - DYSPNOEA [None]
